FAERS Safety Report 18383484 (Version 1)
Quarter: 2020Q4

REPORT INFORMATION
  Report Type: Spontaneous
  Country: BR (occurrence: BR)
  Receive Date: 20201014
  Receipt Date: 20201014
  Transmission Date: 20210114
  Serious: Yes (Hospitalization, Other)
  Sender: FDA-Public Use
  Company Number: NVSC2020BR274296

PATIENT
  Age: 87 Year
  Sex: Female

DRUGS (4)
  1. EXELON [Suspect]
     Active Substance: RIVASTIGMINE TARTRATE
     Indication: DEMENTIA ALZHEIMER^S TYPE
     Dosage: 4.6 MG, QD [(PATCH 5 CM2) 9MG RIVASTIGMINE BASE
     Route: 065
  2. MEMANTINE. [Concomitant]
     Active Substance: MEMANTINE
     Indication: DEMENTIA ALZHEIMER^S TYPE
     Dosage: UNK
     Route: 065
  3. EXELON [Suspect]
     Active Substance: RIVASTIGMINE TARTRATE
     Dosage: 9.5 MG, QD [(PATCH 10 CM2) 18 MG RIVASTIGMINE BASE]
     Route: 065
     Dates: end: 202003
  4. EXELON [Suspect]
     Active Substance: RIVASTIGMINE TARTRATE
     Dosage: 13.3 MG, QD [(PATCH 15 CM2) 27 MG RIVASTIGMINE BASE]
     Route: 065
     Dates: start: 202003

REACTIONS (5)
  - Fall [Unknown]
  - Femur fracture [Unknown]
  - Postoperative wound infection [Unknown]
  - Nosocomial infection [Unknown]
  - Product adhesion issue [Unknown]

NARRATIVE: CASE EVENT DATE: 20200619
